FAERS Safety Report 6955635-9 (Version None)
Quarter: 2010Q3

REPORT INFORMATION
  Report Type: 
  Country: None (occurrence: None)
  Receive Date: 20100830
  Receipt Date: 20100820
  Transmission Date: 20110219
  Serious: Yes (Other)
  Sender: FDA-Public Use
  Company Number: US-PFIZER INC-2010105375

PATIENT
  Sex: Male
  Weight: 88.435 kg

DRUGS (3)
  1. XALATAN [Suspect]
     Indication: GLAUCOMA
     Dosage: 1 GTT EACH EYE DAILY
     Route: 047
  2. DORZOLAMIDE HYDROCHLORIDE AND TIMOLOL MALEATE [Concomitant]
     Indication: GLAUCOMA
     Dosage: UNK, 2X/DAY
     Route: 047
  3. INDOMETHACIN [Concomitant]
     Indication: ARTHRITIS
     Dosage: 25 MG, UNK
     Route: 048

REACTIONS (1)
  - HYPERTENSION [None]
